FAERS Safety Report 8806264 (Version 2)
Quarter: 2012Q4

REPORT INFORMATION
  Report Type: Spontaneous
  Country: IT (occurrence: None)
  Receive Date: 20120918
  Receipt Date: 20121003
  Transmission Date: 20130627
  Serious: Yes (Life-Threatening, Other)
  Sender: FDA-Public Use
  Company Number: 2012DEPIT00421

PATIENT
  Age: 46 Year
  Sex: Female

DRUGS (2)
  1. DEPOCYT [Suspect]
     Indication: EPENDYMOMA MALIGNANT
     Dosage: 1 Unk, Unk, Intrathecal
     Route: 037
     Dates: start: 20120716, end: 20120716
  2. DEPOCYT [Suspect]
     Indication: ANAPLASTIC EPENDYMOMA
     Dosage: 1 Unk, Unk, Intrathecal
     Route: 037
     Dates: start: 20120716, end: 20120716

REACTIONS (4)
  - Hyperpyrexia [None]
  - Headache [None]
  - Back pain [None]
  - White blood cell count increased [None]
